FAERS Safety Report 23827802 (Version 1)
Quarter: 2024Q2

REPORT INFORMATION
  Report Type: Spontaneous
  Country: US (occurrence: US)
  Receive Date: 20240507
  Receipt Date: 20240507
  Transmission Date: 20240716
  Serious: Yes (Other)
  Sender: FDA-Public Use
  Company Number: US-Covis Pharma GmbH-2024COV00540

PATIENT
  Age: 37 Year
  Sex: Female

DRUGS (1)
  1. FERAHEME [Suspect]
     Active Substance: FERUMOXYTOL NON-STOICHIOMETRIC MAGNETITE
     Indication: Iron deficiency anaemia
     Dates: start: 20230628

REACTIONS (8)
  - Chronic gastritis [Unknown]
  - Nasopharyngitis [Unknown]
  - Nausea [Unknown]
  - Alopecia [Unknown]
  - Serum ferritin increased [Unknown]
  - Blood iron increased [Unknown]
  - Sinusitis [Unknown]
  - Abdominal pain [Unknown]

NARRATIVE: CASE EVENT DATE: 20230901
